FAERS Safety Report 8487929-2 (Version None)
Quarter: 2012Q2

REPORT INFORMATION
  Report Type: 
  Country: None (occurrence: None)
  Receive Date: 20120402
  Receipt Date: 20100727
  Transmission Date: 20120825
  Serious: Yes (Hospitalization)
  Sender: FDA-Public Use
  Company Number: PHHY2010US49795

PATIENT
  Sex: Male

DRUGS (2)
  1. LASIX [Suspect]
  2. EXFORGE [Suspect]
     Dosage: 320/10 MG;  320/5 MG

REACTIONS (2)
  - HYPERTENSION [None]
  - OEDEMA PERIPHERAL [None]
